FAERS Safety Report 5716283-1 (Version None)
Quarter: 2008Q2

REPORT INFORMATION
  Report Type: 
  Country: None (occurrence: None)
  Receive Date: 20080424
  Receipt Date: 20080414
  Transmission Date: 20081010
  Serious: Yes (Hospitalization, Other)
  Sender: FDA-Public Use
  Company Number: B0516953A

PATIENT
  Age: 90 Year
  Sex: Female

DRUGS (4)
  1. AUGMENTIN '125' [Suspect]
     Indication: LUNG INFECTION
     Dosage: 1G THREE TIMES PER DAY
     Route: 048
     Dates: start: 20080128, end: 20080130
  2. ROCEPHIN [Suspect]
     Indication: LUNG INFECTION
     Dosage: 1INJ PER DAY
     Route: 030
     Dates: start: 20080130, end: 20080202
  3. TAZOCILLINE [Suspect]
     Dosage: 4G THREE TIMES PER DAY
     Route: 042
     Dates: start: 20080202, end: 20080203
  4. DURAGESIC-100 [Concomitant]
     Indication: PAIN
     Route: 065
     Dates: start: 20080101

REACTIONS (4)
  - PRURITUS [None]
  - RASH [None]
  - RASH ERYTHEMATOUS [None]
  - STOMATITIS [None]
